FAERS Safety Report 23910069 (Version 1)
Quarter: 2024Q2

REPORT INFORMATION
  Report Type: Report from Study
  Country: US (occurrence: US)
  Receive Date: 20240528
  Receipt Date: 20240528
  Transmission Date: 20240716
  Serious: Yes (Hospitalization, Other)
  Sender: FDA-Public Use
  Company Number: US-PFIZER INC-PV202400068489

PATIENT
  Age: 69 Year
  Sex: Female
  Weight: 58.957 kg

DRUGS (33)
  1. IBRANCE [Suspect]
     Active Substance: PALBOCICLIB
     Indication: Breast cancer female
     Dosage: UNK
  2. ADEMPAS [Suspect]
     Active Substance: RIOCIGUAT
     Dosage: UNK
  3. ADEMPAS [Suspect]
     Active Substance: RIOCIGUAT
     Dosage: UNK
  4. REMODULIN [Suspect]
     Active Substance: TREPROSTINIL
     Indication: Pulmonary arterial hypertension
     Dosage: 5.0 MG/ML, USED AT 0.0345 UG/KG, (SELF-FILL WITH 2.2ML PER CASSETTE; RATE 24 MCL PER HOUR)
     Route: 058
     Dates: start: 2023
  5. REMODULIN [Suspect]
     Active Substance: TREPROSTINIL
     Dosage: 10.0 MG/ML USED AT 0.046 UG/KG, (SELF-FILL WITH 2.8ML PER CASSETTE; RATE 32 MCL PER HOUR)
     Route: 058
  6. REMODULIN [Suspect]
     Active Substance: TREPROSTINIL
     Dosage: 0.030 UG/KG, (SELF-FILL WITH 2 ML PER CASSETTE; RATE 21 MCL PER HOUR)
     Route: 058
  7. REMODULIN [Suspect]
     Active Substance: TREPROSTINIL
     Dosage: UNK
     Route: 058
     Dates: start: 20230727
  8. REMODULIN [Suspect]
     Active Substance: TREPROSTINIL
     Dosage: 10.0 MG/ML USED AT 0.049 UG/KG, (SELF FILLED WITH 1.7 ML PER CASSETTE; PUMP RATE 17 MCL HER HOUR)
     Route: 058
     Dates: start: 2023
  9. REMODULIN [Suspect]
     Active Substance: TREPROSTINIL
     Dosage: UNK
     Route: 058
     Dates: start: 2023
  10. REGLAN [Suspect]
     Active Substance: METOCLOPRAMIDE HYDROCHLORIDE
     Indication: Nausea
     Dosage: UNK
     Dates: start: 2023
  11. OMEPRAZOLE [Concomitant]
     Active Substance: DONEPEZIL HYDROCHLORIDE\OMEPRAZOLE\OMEPRAZOLE MAGNESIUM
  12. FUROSEMIDE [Concomitant]
     Active Substance: FUROSEMIDE
  13. OXYCODONE HYDROCHLORIDE [Concomitant]
     Active Substance: OXYCODONE HYDROCHLORIDE
  14. ALLEGRA ALLERGY [Concomitant]
     Active Substance: FEXOFENADINE HYDROCHLORIDE
  15. ANASTROZOLE [Concomitant]
     Active Substance: ANASTROZOLE
  16. SODIUM CHLORIDE [Concomitant]
     Active Substance: SODIUM CHLORIDE
  17. OPSUMIT [Concomitant]
     Active Substance: MACITENTAN
  18. KETAMINE HYDROCHLORIDE [Concomitant]
     Active Substance: KETAMINE HYDROCHLORIDE
  19. LECITHIN [Concomitant]
     Active Substance: LECITHIN
  20. ROSUVASTATIN CALCIUM [Concomitant]
     Active Substance: ROSUVASTATIN CALCIUM
  21. ALBUTEROL SULFATE [Concomitant]
     Active Substance: ALBUTEROL SULFATE
  22. FLONASE ALLERGY RELIEF [Concomitant]
     Active Substance: FLUTICASONE PROPIONATE
  23. CLONIDINE [Concomitant]
     Active Substance: CLONIDINE
  24. KETOPROFEN [Concomitant]
     Active Substance: KETOPROFEN
  25. CALCIUM ANTACID [Concomitant]
     Active Substance: CALCIUM CARBONATE
  26. LIDOCAINE HYDROCHLORIDE [Concomitant]
     Active Substance: LIDOCAINE HYDROCHLORIDE
  27. VITAMIN D3 [Concomitant]
     Active Substance: CHOLECALCIFEROL
  28. AMITRIPTYLINE HYDROCHLORIDE [Concomitant]
     Active Substance: AMITRIPTYLINE HYDROCHLORIDE
  29. GABAPENTIN [Concomitant]
     Active Substance: GABAPENTIN
  30. POLOXAMER [Concomitant]
     Active Substance: POLOXAMER
  31. ASPIRIN [Concomitant]
     Active Substance: ASPIRIN
  32. OXYGEN [Concomitant]
     Active Substance: OXYGEN
  33. ACETAMINOPHEN [Concomitant]
     Active Substance: ACETAMINOPHEN

REACTIONS (15)
  - Hypotension [Unknown]
  - Nausea [Unknown]
  - Dizziness [Unknown]
  - Fatigue [Unknown]
  - Hypoxia [Unknown]
  - Pneumonia [Unknown]
  - Headache [Unknown]
  - Diarrhoea [Unknown]
  - Pyrexia [Unknown]
  - Weight decreased [Unknown]
  - Decreased appetite [Unknown]
  - Malaise [Unknown]
  - Mobility decreased [Unknown]
  - Therapy partial responder [Unknown]
  - Neoplasm progression [Unknown]

NARRATIVE: CASE EVENT DATE: 20230101
